FAERS Safety Report 6917375-1 (Version None)
Quarter: 2010Q3

REPORT INFORMATION
  Report Type: 
  Country: None (occurrence: None)
  Receive Date: 20100805
  Receipt Date: 20100726
  Transmission Date: 20110219
  Serious: Yes (Other)
  Sender: FDA-Public Use
  Company Number: JHP201000221

PATIENT
  Age: 86 Year
  Sex: Female

DRUGS (3)
  1. EPINEPHRINE [Suspect]
     Dosage: 1:50,000 DILUTION WITH GLYCEROL 10% - TOTAL OF 360 ML OF THE MIXTURE SUBMUCOSALLY, OTHER
     Route: 050
  2. GLYCEROL 2.6% [Suspect]
     Dosage: 10 % WITH EPINEPHRINE 1:50,000 - TOTAL OF 360 ML OF THE MIXTURE - SUBMUCOSALLY, OTHER
     Route: 050
  3. PROPOFOL [Concomitant]

REACTIONS (8)
  - EMBOLISM ARTERIAL [None]
  - GASTRIC STENOSIS [None]
  - GASTROINTESTINAL ISCHAEMIA [None]
  - HYPOPERFUSION [None]
  - LEUKOCYTOSIS [None]
  - NECROSIS ISCHAEMIC [None]
  - VOMITING [None]
  - WRONG TECHNIQUE IN DRUG USAGE PROCESS [None]
